FAERS Safety Report 18311361 (Version 1)
Quarter: 2020Q3

REPORT INFORMATION
  Report Type: Spontaneous
  Country: US (occurrence: US)
  Receive Date: 20200924
  Receipt Date: 20200924
  Transmission Date: 20201103
  Serious: No
  Sender: FDA-Public Use
  Company Number: None

PATIENT
  Age: 76 Year
  Sex: Male

DRUGS (1)
  1. APIXABAN (APIXABAN 5MG TAB) [Suspect]
     Active Substance: APIXABAN
     Route: 048
     Dates: start: 20171027, end: 20181101

REACTIONS (3)
  - Dyspnoea [None]
  - Cardiac ventricular thrombosis [None]
  - Cardiac failure congestive [None]

NARRATIVE: CASE EVENT DATE: 20181101
